FAERS Safety Report 4358254-6 (Version None)
Quarter: 2004Q2

REPORT INFORMATION
  Report Type: 
  Country: None (occurrence: None)
  Receive Date: 20040511
  Receipt Date: 20040511
  Transmission Date: 20050107
  Serious: Yes (Hospitalization)
  Sender: FDA-Public Use
  Company Number: None

PATIENT
  Age: 54 Year
  Sex: Male
  Weight: 72.1 kg

DRUGS (12)
  1. MORPHINE [Suspect]
  2. ZIPRASIDONE [Concomitant]
  3. PROCHLORPERAZINE [Concomitant]
  4. DIPHENHYDRAMINE HCL [Concomitant]
  5. LOPERAMIDE HCL [Concomitant]
  6. CARISOPRODOL [Concomitant]
  7. CLONAZEPAM [Concomitant]
  8. ALPRAZOLAM [Concomitant]
  9. TRAZODONE HCL [Concomitant]
  10. ASPIRIN [Concomitant]
  11. TRAMADOL HCL [Concomitant]
  12. AMITRIPTYLINE HCL [Concomitant]

REACTIONS (2)
  - DYSARTHRIA [None]
  - SOMNOLENCE [None]
